FAERS Safety Report 5104347-5 (Version None)
Quarter: 2006Q3

REPORT INFORMATION
  Report Type: 
  Country: None (occurrence: None)
  Receive Date: 20060731
  Receipt Date: 20060404
  Transmission Date: 20061208
  Serious: Yes (Hospitalization, Other)
  Sender: FDA-Public Use
  Company Number: US-JNJFOC-20060204192

PATIENT
  Age: 94 Year
  Sex: Female

DRUGS (7)
  1. RISPERDAL [Suspect]
     Indication: AGGRESSION
     Dosage: SEE IMAGE
     Route: 048
     Dates: start: 20051219
  2. RISPERDAL [Suspect]
     Indication: DEMENTIA
     Dosage: SEE IMAGE
     Route: 048
     Dates: start: 20051219
  3. RISPERDAL [Suspect]
     Indication: SCREAMING
     Dosage: SEE IMAGE
     Route: 048
     Dates: start: 20051219
  4. RISPERDAL [Suspect]
     Indication: AGGRESSION
     Dosage: SEE IMAGE
     Route: 048
     Dates: start: 20060102
  5. RISPERDAL [Suspect]
     Indication: DEMENTIA
     Dosage: SEE IMAGE
     Route: 048
     Dates: start: 20060102
  6. RISPERDAL [Suspect]
     Indication: SCREAMING
     Dosage: SEE IMAGE
     Route: 048
     Dates: start: 20060102
  7. HALDOL [Suspect]
     Indication: AGITATION
     Dosage: 0.5 MG, IN 1 AS NECESSARY, ORAL
     Route: 048
     Dates: start: 20060109

REACTIONS (2)
  - AGITATION [None]
  - CEREBROVASCULAR ACCIDENT [None]
